FAERS Safety Report 5880285-5 (Version None)
Quarter: 2008Q3

REPORT INFORMATION
  Report Type: 
  Country: None (occurrence: None)
  Receive Date: 20080912
  Receipt Date: 20080905
  Transmission Date: 20090109
  Serious: Yes (Hospitalization)
  Sender: FDA-Public Use
  Company Number: PHHY2008CH20258

PATIENT
  Age: 77 Year
  Sex: Female

DRUGS (7)
  1. VOLTAREN [Suspect]
     Indication: BACK PAIN
     Dosage: UNK
     Dates: end: 20080528
  2. ASPIRIN [Suspect]
     Dosage: 100 MG/DAY
     Dates: end: 20080528
  3. TRAMAL [Concomitant]
     Indication: BACK PAIN
     Dosage: UNK
     Dates: end: 20080530
  4. BISOPROLOL FUMARATE [Concomitant]
     Dosage: 1.25 MG/DAY
  5. RAMIPRIL [Concomitant]
     Dosage: 1.25 MG/DAY
  6. MIDAZOLAM HCL [Concomitant]
     Dosage: 7.5 MG/DAY
  7. SEREATA [Concomitant]
     Dosage: 15 MG/DAY

REACTIONS (10)
  - ANAEMIA [None]
  - GASTRIC ULCER [None]
  - GASTROINTESTINAL HAEMORRHAGE [None]
  - GASTROINTESTINAL MUCOSAL DISORDER [None]
  - HAEMATEMESIS [None]
  - HAEMOGLOBIN DECREASED [None]
  - MALLORY-WEISS SYNDROME [None]
  - MELAENA [None]
  - PALPATORY FINDING ABNORMAL [None]
  - REFLUX OESOPHAGITIS [None]
